FAERS Safety Report 14900514 (Version 1)
Quarter: 2018Q2

REPORT INFORMATION
  Report Type: Spontaneous
  Country: US (occurrence: US)
  Receive Date: 20180429
  Receipt Date: 20180429
  Transmission Date: 20180711
  Serious: Yes (Other)
  Sender: FDA-Public Use
  Company Number: None

PATIENT
  Age: 39 Year
  Sex: Female
  Weight: 101.25 kg

DRUGS (5)
  1. FISH OIL [Concomitant]
     Active Substance: FISH OIL
  2. CLARAVIS [Suspect]
     Active Substance: ISOTRETINOIN
     Indication: ACNE
     Dosage: ?          QUANTITY:1 CAPSULE(S);?
     Route: 048
     Dates: start: 20170828, end: 20180409
  3. CLARAVIS [Suspect]
     Active Substance: ISOTRETINOIN
     Indication: INFLAMMATION
     Dosage: ?          QUANTITY:1 CAPSULE(S);?
     Route: 048
     Dates: start: 20170828, end: 20180409
  4. CLARAVIS [Suspect]
     Active Substance: ISOTRETINOIN
     Indication: SEBORRHOEA
     Dosage: ?          QUANTITY:1 CAPSULE(S);?
     Route: 048
     Dates: start: 20170828, end: 20180409
  5. LORATADINE. [Concomitant]
     Active Substance: LORATADINE

REACTIONS (6)
  - Mental disorder [None]
  - Depression [None]
  - Affective disorder [None]
  - Psychotic disorder [None]
  - Suicidal ideation [None]
  - Product quality issue [None]

NARRATIVE: CASE EVENT DATE: 20180409
